FAERS Safety Report 25116368 (Version 2)
Quarter: 2025Q2

REPORT INFORMATION
  Report Type: Report from Study
  Country: GB (occurrence: GB)
  Receive Date: 20250325
  Receipt Date: 20250530
  Transmission Date: 20250716
  Serious: Yes (Hospitalization)
  Sender: AMGEN
  Company Number: GB-AMGEN-GBRSL2025054725

PATIENT
  Sex: Female

DRUGS (1)
  1. USTEKINUMAB [Suspect]
     Active Substance: USTEKINUMAB
     Indication: Crohn^s disease
     Dosage: 90 MILLIGRAM, Q8WK
     Route: 058

REACTIONS (2)
  - Crohn^s disease [Unknown]
  - Unevaluable event [Unknown]
